FAERS Safety Report 16113631 (Version 1)
Quarter: 2019Q1

REPORT INFORMATION
  Report Type: Spontaneous
  Country: US (occurrence: US)
  Receive Date: 20190325
  Receipt Date: 20190325
  Transmission Date: 20190418
  Serious: No
  Sender: FDA-Public Use
  Company Number: US-ALLERGAN-1847859US

PATIENT
  Age: 60 Year
  Sex: Female

DRUGS (3)
  1. EYELINER [Concomitant]
     Dosage: UNK
     Route: 065
  2. LATISSE [Suspect]
     Active Substance: BIMATOPROST
     Indication: GROWTH OF EYELASHES
     Dosage: 2 GTT, QHS
     Route: 061
     Dates: start: 20180818, end: 20181003
  3. MASCARA [Concomitant]
     Dosage: UNK
     Route: 065

REACTIONS (3)
  - Hordeolum [Recovered/Resolved]
  - Drug ineffective [Unknown]
  - Hordeolum [Not Recovered/Not Resolved]

NARRATIVE: CASE EVENT DATE: 201809
